FAERS Safety Report 8776404 (Version 1)
Quarter: 2012Q4

REPORT INFORMATION
  Report Type: 
  Country: BR (occurrence: BR)
  Receive Date: 20120910
  Receipt Date: 20120910
  Transmission Date: 20130627
  Serious: Yes (Other)
  Sender: FDA-Public Use
  Company Number: BR-NOVOPROD-359196

PATIENT
  Sex: Male

DRUGS (1)
  1. VICTOZA [Suspect]
     Dosage: UNK
     Route: 065
     Dates: start: 201202

REACTIONS (2)
  - Epididymitis [Unknown]
  - Arthritis [Unknown]
